FAERS Safety Report 17270069 (Version 1)
Quarter: 2020Q1

REPORT INFORMATION
  Report Type: Spontaneous
  Country: US (occurrence: US)
  Receive Date: 20200114
  Receipt Date: 20200114
  Transmission Date: 20200409
  Serious: No
  Sender: FDA-Public Use
  Company Number: US-PARI RESPIRATORY EQUIPMENT, INC.-2019PAR00057

PATIENT
  Sex: Female

DRUGS (6)
  1. PULMOZYME [Concomitant]
     Active Substance: DORNASE ALFA
  2. KITABIS PAK [Suspect]
     Active Substance: TOBRAMYCIN
     Indication: COUGH
  3. KITABIS PAK [Suspect]
     Active Substance: TOBRAMYCIN
     Indication: METABOLIC DISORDER
  4. ORKAMBI [Concomitant]
     Active Substance: IVACAFTOR\LUMACAFTOR
  5. KITABIS PAK [Suspect]
     Active Substance: TOBRAMYCIN
     Indication: CYSTIC FIBROSIS
     Dosage: 300 MG, 2X/DAY (28 DAYS ON AND 28 DAYS OFF)
  6. KITABIS PAK [Suspect]
     Active Substance: TOBRAMYCIN
     Indication: VITAMIN A DEFICIENCY

REACTIONS (2)
  - Condition aggravated [Not Recovered/Not Resolved]
  - Infection [Unknown]
